FAERS Safety Report 9542896 (Version 2)
Quarter: 2013Q3

REPORT INFORMATION
  Report Type: Spontaneous
  Country: TW (occurrence: TW)
  Receive Date: 20130923
  Receipt Date: 20130927
  Transmission Date: 20140515
  Serious: Yes (Life-Threatening, Hospitalization)
  Sender: FDA-Public Use
  Company Number: TW-SANOFI-AVENTIS-2013SA090877

PATIENT
  Age: 86 Year
  Sex: Male

DRUGS (6)
  1. RIFATER [Suspect]
     Indication: TUBERCULOSIS
     Route: 048
     Dates: start: 20130727, end: 20130727
  2. RIFATER [Suspect]
     Indication: TUBERCULOSIS
     Route: 048
     Dates: start: 20130527
  3. RIFATER [Suspect]
     Indication: TUBERCULOSIS
     Route: 048
     Dates: start: 20130820
  4. EBUTOL [Suspect]
     Indication: TUBERCULOSIS
     Route: 048
     Dates: start: 20130727, end: 20130727
  5. EBUTOL [Suspect]
     Indication: TUBERCULOSIS
     Route: 048
     Dates: start: 20130820
  6. EBUTOL [Suspect]
     Indication: TUBERCULOSIS
     Route: 048
     Dates: start: 20130527

REACTIONS (13)
  - Coma [Unknown]
  - Hypoglycaemia [Unknown]
  - Pneumonia [Unknown]
  - Anaphylactic shock [Recovered/Resolved]
  - Tremor [Recovered/Resolved]
  - Body temperature increased [Recovered/Resolved]
  - Heart rate increased [Recovered/Resolved]
  - PO2 decreased [Recovered/Resolved]
  - Blood bicarbonate decreased [Recovered/Resolved]
  - Decreased appetite [Unknown]
  - Nausea [Unknown]
  - Abdominal discomfort [Unknown]
  - Vomiting [Unknown]
